FAERS Safety Report 8272670-1 (Version None)
Quarter: 2012Q2

REPORT INFORMATION
  Report Type: 
  Country: None (occurrence: None)
  Receive Date: 20120411
  Receipt Date: 20120406
  Transmission Date: 20120825
  Serious: Yes (Other)
  Sender: FDA-Public Use
  Company Number: FR-AMGEN-FRASP2012021905

PATIENT
  Age: 77 Year
  Sex: Male

DRUGS (3)
  1. ARANESP [Suspect]
     Dosage: 500 MUG, UNK
  2. ARANESP [Suspect]
     Indication: ANAEMIA
     Dosage: 60 MUG, Q2WK
  3. ANTIHYPERTENSIVES [Concomitant]
     Indication: HYPERTENSION

REACTIONS (1)
  - INCORRECT DOSE ADMINISTERED [None]
